FAERS Safety Report 8562808-0 (Version None)
Quarter: 2012Q3

REPORT INFORMATION
  Report Type: 
  Country: None (occurrence: None)
  Receive Date: 20120802
  Receipt Date: 20120717
  Transmission Date: 20120928
  Serious: No
  Sender: FDA-Public Use
  Company Number: US-AMGEN-USASP2012044461

PATIENT
  Sex: Female

DRUGS (2)
  1. ENBREL [Suspect]
     Indication: PSORIATIC ARTHROPATHY
     Dosage: 50 MG, QWK
     Dates: start: 20100101
  2. ENBREL [Suspect]
     Indication: RHEUMATOID ARTHRITIS

REACTIONS (9)
  - BURSITIS [None]
  - RHEUMATOID ARTHRITIS [None]
  - EXOSTOSIS [None]
  - CONTUSION [None]
  - AMNESIA [None]
  - NARCOLEPSY [None]
  - FALL [None]
  - MOBILITY DECREASED [None]
  - INJECTION SITE PAIN [None]
